FAERS Safety Report 19610031 (Version 1)
Quarter: 2021Q3

REPORT INFORMATION
  Report Type: Spontaneous
  Country: US (occurrence: US)
  Receive Date: 20210726
  Receipt Date: 20210726
  Transmission Date: 20211014
  Serious: No
  Sender: FDA-Public Use
  Company Number: US-BION-008930

PATIENT

DRUGS (1)
  1. BIONPHARMA^S AMANTADINE HYDROCHLORIDE CAPSULES 100 MG [Suspect]
     Active Substance: AMANTADINE HYDROCHLORIDE
     Indication: PRODUCT USED FOR UNKNOWN INDICATION
     Dosage: STRENGTH 100 MG, 1 PER DAY

REACTIONS (1)
  - Rash [Unknown]
